FAERS Safety Report 8370915-0 (Version None)
Quarter: 2012Q2

REPORT INFORMATION
  Report Type: 
  Country: None (occurrence: None)
  Receive Date: 20120518
  Receipt Date: 20111201
  Transmission Date: 20120825
  Serious: No
  Sender: FDA-Public Use
  Company Number: US-BAUSCH-2011BL008550

PATIENT
  Age: 85 Year
  Sex: Female

DRUGS (2)
  1. NASONEX [Concomitant]
  2. IPRATROPIUM BROMIDE [Suspect]
     Indication: NASAL CONGESTION
     Route: 045
     Dates: start: 20111101, end: 20111130

REACTIONS (2)
  - HEADACHE [None]
  - BLOOD PRESSURE INCREASED [None]
